FAERS Safety Report 15929745 (Version 14)
Quarter: 2019Q3

REPORT INFORMATION
  Report Type: Report from Study
  Country: CO (occurrence: CO)
  Receive Date: 20190206
  Receipt Date: 20190910
  Transmission Date: 20191004
  Serious: Yes (Life-Threatening, Disabling, Other)
  Sender: FDA-Public Use
  Company Number: PHHY2019CO019966

PATIENT
  Age: 72 Year
  Sex: Female
  Weight: 52 kg

DRUGS (12)
  1. KISQALI [Suspect]
     Active Substance: RIBOCICLIB
     Indication: BREAST CANCER METASTATIC
     Dosage: 600 MG, QD
     Route: 048
     Dates: start: 20181220
  2. NALOXONE [Concomitant]
     Active Substance: NALOXONE
     Indication: PRODUCT USED FOR UNKNOWN INDICATION
     Dosage: 5/10 MG (DAILY EVERY 12 HOURS IN THE MORNING AND AT NIGHT)
     Route: 048
     Dates: start: 201703
  3. ONDANSETRON HYDROCHLORIDE. [Suspect]
     Active Substance: ONDANSETRON HYDROCHLORIDE
     Indication: PRODUCT USED FOR UNKNOWN INDICATION
     Dosage: 8 MG, UNK
     Route: 048
     Dates: start: 201703
  4. SERTRALINE [Suspect]
     Active Substance: SERTRALINE HYDROCHLORIDE
     Indication: PRODUCT USED FOR UNKNOWN INDICATION
     Dosage: 100 MG, QD (DAILY IN THE MORNING)
     Route: 048
     Dates: start: 201706
  5. GEMFIBROZIL. [Concomitant]
     Active Substance: GEMFIBROZIL
     Indication: PRODUCT USED FOR UNKNOWN INDICATION
     Dosage: 600 MG, QD (AT NIGHT)
     Route: 048
     Dates: start: 201806
  6. FEMARA [Suspect]
     Active Substance: LETROZOLE
     Indication: BREAST CANCER
     Dosage: 2.5 MG, QD (AT 11 AM)
     Route: 048
  7. LOSARTAN POTASSIUM. [Suspect]
     Active Substance: LOSARTAN POTASSIUM
     Indication: PRODUCT USED FOR UNKNOWN INDICATION
     Dosage: 40 MG, QD (DAILY IN THE MORNING)
     Route: 048
  8. ESOMEPRAZOLE MAGNESIUM. [Suspect]
     Active Substance: ESOMEPRAZOLE MAGNESIUM
     Indication: PRODUCT USED FOR UNKNOWN INDICATION
     Dosage: 40 MG, QD (DAILY IN THE MORNING)
     Route: 048
  9. ACETAMIN FORTE [Concomitant]
     Indication: PRODUCT USED FOR UNKNOWN INDICATION
     Dosage: 1000 MG, QD (IN THE MORNING)
     Route: 048
  10. GABAPENTIN SANDOZ [Suspect]
     Active Substance: GABAPENTIN
     Indication: PRODUCT USED FOR UNKNOWN INDICATION
     Dosage: 300 MG, QD (DAILY IN THE MORNING AND AT NIGHT))
     Route: 048
  11. CALCIMAX D3 [Concomitant]
     Indication: PRODUCT USED FOR UNKNOWN INDICATION
     Dosage: 1500MG/200 UI
     Route: 048
  12. CLONIDINE. [Concomitant]
     Active Substance: CLONIDINE
     Indication: PRODUCT USED FOR UNKNOWN INDICATION
     Dosage: 150 MG, QD (AT NIGHT)
     Route: 048

REACTIONS (12)
  - Brain neoplasm [Unknown]
  - Cough [Unknown]
  - Gait disturbance [Unknown]
  - Dysphonia [Unknown]
  - Feeling abnormal [Unknown]
  - Malaise [Unknown]
  - Speech disorder [Unknown]
  - Nausea [Unknown]
  - Choking [Unknown]
  - General physical health deterioration [Not Recovered/Not Resolved]
  - Dizziness [Unknown]
  - Dysarthria [Unknown]

NARRATIVE: CASE EVENT DATE: 20181220
